FAERS Safety Report 23376005 (Version 1)
Quarter: 2024Q1

REPORT INFORMATION
  Report Type: Spontaneous
  Country: FR (occurrence: FR)
  Receive Date: 20240108
  Receipt Date: 20240108
  Transmission Date: 20240410
  Serious: Yes (Hospitalization)
  Sender: FDA-Public Use
  Company Number: None

PATIENT
  Age: 30 Year
  Sex: Male

DRUGS (14)
  1. BROMAZEPAM [Suspect]
     Active Substance: BROMAZEPAM
     Dosage: DAILY DOSE: 3 MILLIGRAM
     Route: 048
     Dates: start: 2023
  2. OLANZAPINE [Suspect]
     Active Substance: OLANZAPINE
  3. ZOLPIDEM [Suspect]
     Active Substance: ZOLPIDEM TARTRATE
     Dosage: DAILY DOSE: 10 MILLIGRAM
     Route: 048
     Dates: start: 2023
  4. ALPRAZOLAM [Suspect]
     Active Substance: ALPRAZOLAM
     Dosage: DAILY DOSE: 2 MILLIGRAM
     Route: 048
     Dates: start: 2023
  5. DIAZEPAM [Suspect]
     Active Substance: DIAZEPAM
     Indication: Anxiety
     Dosage: FREQUENCY: MORNING, NOON AND EVENING, THEN INCREASE TO 6X/DAY?DAILY DOSE: 30 MILLIGRAM
     Route: 048
     Dates: start: 2023
  6. DIAZEPAM [Suspect]
     Active Substance: DIAZEPAM
     Indication: Anxiety
     Dosage: DIAZEPAM 60 MG/DAY DIVIDED INTO 6 DOSES: INEFFECTIVE ACCORDING TO THE PATIENT ON HIS ANXIETY
     Route: 048
  7. METHADONE [Suspect]
     Active Substance: METHADONE HYDROCHLORIDE
     Indication: Pain
     Dosage: DAILY DOSE: 60 MILLIGRAM
     Dates: start: 2023
  8. METHYLPHENIDATE HYDROCHLORIDE [Suspect]
     Active Substance: METHYLPHENIDATE HYDROCHLORIDE
     Dosage: DAILY DOSE: 30 MILLIGRAM
     Dates: start: 2023
  9. METHYLPHENIDATE HYDROCHLORIDE [Suspect]
     Active Substance: METHYLPHENIDATE HYDROCHLORIDE
     Dosage: FREQUENCY: TID?DAILY DOSE: 120 MILLIGRAM
  10. OXYCODONE [Suspect]
     Active Substance: OXYCODONE
     Indication: Pain
  11. PRAZEPAM [Suspect]
     Active Substance: PRAZEPAM
     Dosage: FREQUENCY: TID, PLASMA PEAK 4-6H, 10-10-10 ?DAILY DOSE: 30 MILLIGRAM
  12. TRANXENE [Suspect]
     Active Substance: CLORAZEPATE DIPOTASSIUM
     Dosage: FREQUENCY: TID, PLASMA PEAK 1H, THEREFORE MORE ADDICTIVE?DAILY DOSE: 90 MILLIGRAM
  13. CANNABIS SATIVA SUBSP. INDICA TOP [Suspect]
     Active Substance: CANNABIS SATIVA SUBSP. INDICA TOP
     Dosage: ONGOING
     Dates: start: 2011
  14. COCAINE [Suspect]
     Active Substance: COCAINE
     Dosage: (18 YRS)- ONGOING, IV OR SNORTED, 1G/D 5 (RELATED CASES: AV-MPL 23-584, ENDOCARDITIS, SEVERE UNDE...
     Dates: start: 2011

REACTIONS (2)
  - Endocarditis [Unknown]
  - Drug use disorder [Unknown]

NARRATIVE: CASE EVENT DATE: 20230101
